FAERS Safety Report 9968092 (Version 1)
Quarter: 2014Q1

REPORT INFORMATION
  Report Type: Report from Study
  Country: US (occurrence: US)
  Receive Date: 20140306
  Receipt Date: 20140306
  Transmission Date: 20141002
  Serious: No
  Sender: FDA-Public Use
  Company Number: US-ABBVIE-13P-163-1142401-00

PATIENT
  Sex: Female

DRUGS (18)
  1. HUMIRA [Suspect]
     Indication: CROHN^S DISEASE
  2. HUMIRA [Suspect]
  3. HUMIRA [Suspect]
  4. HUMIRA [Suspect]
     Dates: start: 201212, end: 201212
  5. HUMIRA [Suspect]
  6. HUMIRA [Suspect]
  7. SYNTHROID [Concomitant]
     Indication: HYPOTHYROIDISM
  8. EFFEXOR [Concomitant]
     Indication: ANXIETY
  9. EFFEXOR [Concomitant]
     Indication: DEPRESSION
  10. NEXIUM [Concomitant]
     Indication: GASTROOESOPHAGEAL REFLUX DISEASE
  11. LEVOCETIRIZINE [Concomitant]
     Indication: URTICARIA
  12. TRAZODONE [Concomitant]
     Indication: SLEEP DISORDER THERAPY
  13. LIPITOR [Concomitant]
     Indication: BLOOD CHOLESTEROL INCREASED
  14. VITAMIN B12 [Concomitant]
     Indication: CROHN^S DISEASE
  15. FLONASE [Concomitant]
     Indication: HYPERSENSITIVITY
  16. FLEXERIL [Concomitant]
     Indication: FIBROMYALGIA
  17. KLONOPIN [Concomitant]
     Indication: ANXIETY
  18. MULTIVITAMIN [Concomitant]
     Indication: VITAMIN SUPPLEMENTATION

REACTIONS (8)
  - Menstruation irregular [Not Recovered/Not Resolved]
  - Menorrhagia [Not Recovered/Not Resolved]
  - Pustular psoriasis [Not Recovered/Not Resolved]
  - Pustular psoriasis [Not Recovered/Not Resolved]
  - Pustular psoriasis [Not Recovered/Not Resolved]
  - Pustular psoriasis [Not Recovered/Not Resolved]
  - Iritis [Unknown]
  - Diarrhoea [Unknown]
